FAERS Safety Report 15014440 (Version 4)
Quarter: 2020Q2

REPORT INFORMATION
  Report Type: Spontaneous
  Country: US (occurrence: US)
  Receive Date: 20180615
  Receipt Date: 20200515
  Transmission Date: 20200713
  Serious: Yes (Death, Other)
  Sender: FDA-Public Use
  Company Number: US-ASTRAZENECA-2018SE74135

PATIENT
  Age: 62 Year
  Sex: Female
  Weight: 81.6 kg

DRUGS (67)
  1. OMEPRAZOLE. [Suspect]
     Active Substance: OMEPRAZOLE
     Indication: GASTROOESOPHAGEAL REFLUX DISEASE
     Dosage: 90.0MG UNKNOWN
     Route: 065
     Dates: start: 2010, end: 2012
  2. PROTONIX [Suspect]
     Active Substance: PANTOPRAZOLE SODIUM
     Indication: GASTRIC PH DECREASED
     Dosage: GENERIC (PANTOPRAZOLE)90.0MG UNKNOWN
     Route: 065
     Dates: start: 2009, end: 2010
  3. BYETTA [Concomitant]
     Active Substance: EXENATIDE
  4. VYTORIN [Concomitant]
     Active Substance: EZETIMIBE\SIMVASTATIN
  5. LYRICA [Concomitant]
     Active Substance: PREGABALIN
  6. LORAZEPAM. [Concomitant]
     Active Substance: LORAZEPAM
  7. HYDROCODONE BITARTRATE AND ACETAMINOPHEN [Concomitant]
     Active Substance: ACETAMINOPHEN\HYDROCODONE BITARTRATE
  8. KLOR-CON [Concomitant]
     Active Substance: POTASSIUM CHLORIDE
  9. HYDROCHLOROTHIAZIDE. [Concomitant]
     Active Substance: HYDROCHLOROTHIAZIDE
  10. LANTUS [Concomitant]
     Active Substance: INSULIN GLARGINE
     Indication: DIABETES MELLITUS
  11. METOPROLOL TARTRATE. [Concomitant]
     Active Substance: METOPROLOL TARTRATE
  12. ROPINIROLE. [Concomitant]
     Active Substance: ROPINIROLE
  13. NEXIUM [Suspect]
     Active Substance: ESOMEPRAZOLE MAGNESIUM
     Indication: GASTROOESOPHAGEAL REFLUX DISEASE
     Route: 048
     Dates: start: 2006, end: 2009
  14. NEXIUM [Suspect]
     Active Substance: ESOMEPRAZOLE MAGNESIUM
     Indication: GASTROOESOPHAGEAL REFLUX DISEASE
     Dosage: 30.0MG UNKNOWN
     Route: 048
     Dates: start: 1996, end: 2006
  15. ALPRAZOLAM. [Concomitant]
     Active Substance: ALPRAZOLAM
  16. JANUVIA [Concomitant]
     Active Substance: SITAGLIPTIN PHOSPHATE
  17. AMLODIPINE BESYLATE. [Concomitant]
     Active Substance: AMLODIPINE BESYLATE
  18. ZOLPIDEM TARTRATE. [Concomitant]
     Active Substance: ZOLPIDEM TARTRATE
  19. ATENOLOL. [Concomitant]
     Active Substance: ATENOLOL
     Indication: HYPERTENSION
  20. CLOPIDOGREL [Concomitant]
     Active Substance: CLOPIDOGREL BISULFATE
  21. CEFUROXIME. [Concomitant]
     Active Substance: CEFUROXIME
  22. WARFARIN [Concomitant]
     Active Substance: WARFARIN
  23. CYMBALTA [Concomitant]
     Active Substance: DULOXETINE HYDROCHLORIDE
     Indication: DEPRESSION
  24. AZITHROMYCIN ANHYDROUS. [Concomitant]
     Active Substance: AZITHROMYCIN ANHYDROUS
     Indication: ANTIBIOTIC THERAPY
  25. NEXIUM [Suspect]
     Active Substance: ESOMEPRAZOLE MAGNESIUM
     Indication: GASTROOESOPHAGEAL REFLUX DISEASE
     Route: 048
     Dates: start: 20060803
  26. PROTONIX [Suspect]
     Active Substance: PANTOPRAZOLE SODIUM
     Indication: GASTROOESOPHAGEAL REFLUX DISEASE
     Dosage: UNKNOWN
     Route: 065
     Dates: start: 20050902
  27. FENOFIBRATE. [Concomitant]
     Active Substance: FENOFIBRATE
  28. TRICOR [Concomitant]
     Active Substance: FENOFIBRATE
  29. BUPROPION. [Concomitant]
     Active Substance: BUPROPION
  30. NEXIUM [Suspect]
     Active Substance: ESOMEPRAZOLE MAGNESIUM
     Indication: GASTRIC PH DECREASED
     Dosage: 30.0MG UNKNOWN
     Route: 048
     Dates: start: 1996, end: 2006
  31. NEXIUM [Suspect]
     Active Substance: ESOMEPRAZOLE MAGNESIUM
     Indication: GASTROOESOPHAGEAL REFLUX DISEASE
     Dosage: 40.0MG UNKNOWN
     Route: 048
     Dates: start: 2007, end: 2009
  32. PROTONIX [Suspect]
     Active Substance: PANTOPRAZOLE SODIUM
     Indication: GASTROOESOPHAGEAL REFLUX DISEASE
     Dosage: 30.0MG UNKNOWN
     Route: 065
     Dates: start: 2006, end: 2009
  33. PAROXETINE HYDROCHLORIDE. [Concomitant]
     Active Substance: PAROXETINE HYDROCHLORIDE
  34. METRONIDAZOLE. [Concomitant]
     Active Substance: METRONIDAZOLE
  35. LEVAQUIN [Concomitant]
     Active Substance: LEVOFLOXACIN
  36. ATORVASTATIN [Concomitant]
     Active Substance: ATORVASTATIN
     Indication: BLOOD CHOLESTEROL
  37. BENAZEPRIL [Concomitant]
     Active Substance: BENAZEPRIL HYDROCHLORIDE
     Indication: HYPERTENSION
  38. NEXIUM [Suspect]
     Active Substance: ESOMEPRAZOLE MAGNESIUM
     Indication: GASTRIC PH DECREASED
     Dosage: 40.0MG UNKNOWN
     Route: 048
     Dates: start: 2007, end: 2009
  39. PROTONIX [Suspect]
     Active Substance: PANTOPRAZOLE SODIUM
     Indication: GASTRIC PH DECREASED
     Route: 065
     Dates: start: 1996, end: 2012
  40. PROTONIX [Suspect]
     Active Substance: PANTOPRAZOLE SODIUM
     Indication: GASTRIC PH DECREASED
     Dosage: 30.0MG UNKNOWN
     Route: 065
     Dates: start: 2006, end: 2009
  41. NIASPAN [Concomitant]
     Active Substance: NIACIN
  42. ISOSORBIDE DINITRATE. [Concomitant]
     Active Substance: ISOSORBIDE DINITRATE
  43. SIMVASTATIN. [Concomitant]
     Active Substance: SIMVASTATIN
     Indication: BLOOD CHOLESTEROL
  44. COMBIVENT [Concomitant]
     Active Substance: ALBUTEROL SULFATE\IPRATROPIUM BROMIDE
  45. LISINOPRIL. [Concomitant]
     Active Substance: LISINOPRIL
  46. ZYRTEC [Concomitant]
     Active Substance: CETIRIZINE HYDROCHLORIDE
  47. LOSARTAN. [Concomitant]
     Active Substance: LOSARTAN
  48. NEXIUM [Suspect]
     Active Substance: ESOMEPRAZOLE MAGNESIUM
     Indication: GASTRIC PH DECREASED
     Route: 048
     Dates: start: 1996, end: 2012
  49. NEXIUM [Suspect]
     Active Substance: ESOMEPRAZOLE MAGNESIUM
     Indication: GASTROOESOPHAGEAL REFLUX DISEASE
     Route: 048
     Dates: start: 1996, end: 2012
  50. NEXIUM [Suspect]
     Active Substance: ESOMEPRAZOLE MAGNESIUM
     Indication: GASTRIC PH DECREASED
     Route: 048
     Dates: start: 2006, end: 2009
  51. NEXIUM [Suspect]
     Active Substance: ESOMEPRAZOLE MAGNESIUM
     Indication: GASTRIC PH DECREASED
     Route: 048
     Dates: start: 20060803
  52. PROTONIX [Suspect]
     Active Substance: PANTOPRAZOLE SODIUM
     Indication: GASTROOESOPHAGEAL REFLUX DISEASE
     Route: 065
     Dates: start: 1996, end: 2012
  53. TRAMADOL HYDROCHLORIDE. [Concomitant]
     Active Substance: TRAMADOL HYDROCHLORIDE
  54. METFORMIN HYDROCHLORIDE. [Concomitant]
     Active Substance: METFORMIN HYDROCHLORIDE
  55. FLUCONAZOLE. [Concomitant]
     Active Substance: FLUCONAZOLE
  56. ROPINIROLE HYDROCHLORIDE. [Concomitant]
     Active Substance: ROPINIROLE HYDROCHLORIDE
  57. GABAPENTIN. [Concomitant]
     Active Substance: GABAPENTIN
     Indication: NEURALGIA
  58. OMEPRAZOLE. [Concomitant]
     Active Substance: OMEPRAZOLE
  59. EFFEXOR [Concomitant]
     Active Substance: VENLAFAXINE HYDROCHLORIDE
  60. ZOLPIDEM [Concomitant]
     Active Substance: ZOLPIDEM TARTRATE
  61. LORAZEPAM. [Concomitant]
     Active Substance: LORAZEPAM
  62. FUROSEMIDE. [Concomitant]
     Active Substance: FUROSEMIDE
  63. PROTONIX [Suspect]
     Active Substance: PANTOPRAZOLE SODIUM
     Indication: GASTRIC PH DECREASED
     Dosage: UNKNOWN
     Route: 065
     Dates: start: 20050902
  64. PROTONIX [Suspect]
     Active Substance: PANTOPRAZOLE SODIUM
     Indication: GASTROOESOPHAGEAL REFLUX DISEASE
     Dosage: GENERIC (PANTOPRAZOLE)90.0MG UNKNOWN
     Route: 065
     Dates: start: 2009, end: 2010
  65. LOTREL [Concomitant]
     Active Substance: AMLODIPINE BESYLATE\BENAZEPRIL HYDROCHLORIDE
  66. ACTOS [Concomitant]
     Active Substance: PIOGLITAZONE HYDROCHLORIDE
  67. METOCLOPRAM [Concomitant]
     Active Substance: METOCLOPRAMIDE
     Indication: NAUSEA

REACTIONS (6)
  - Renal failure [Unknown]
  - Acute kidney injury [Unknown]
  - Tubulointerstitial nephritis [Unknown]
  - Injury [Fatal]
  - Chronic kidney disease [Not Recovered/Not Resolved]
  - End stage renal disease [Unknown]

NARRATIVE: CASE EVENT DATE: 2014
